APPROVED DRUG PRODUCT: SPIRONOLACTONE
Active Ingredient: SPIRONOLACTONE
Strength: 25MG
Dosage Form/Route: TABLET;ORAL
Application: A203253 | Product #001 | TE Code: AB
Applicant: JUBILANT GENERICS LTD
Approved: Apr 23, 2014 | RLD: No | RS: No | Type: RX